FAERS Safety Report 5349866-1 (Version None)
Quarter: 2007Q2

REPORT INFORMATION
  Report Type: 
  Country: None (occurrence: None)
  Receive Date: 20070607
  Receipt Date: 20070604
  Transmission Date: 20071010
  Serious: Yes (Hospitalization)
  Sender: FDA-Public Use
  Company Number: US-BOEHRINGER INGELHEIM PHARMACEUTICALS, INC.-2007-BP-06931BP

PATIENT
  Sex: Male

DRUGS (8)
  1. SPIRIVA [Suspect]
     Indication: LUNG DISORDER
     Route: 055
     Dates: start: 20060901
  2. SPIRIVA [Suspect]
     Indication: DYSPNOEA
  3. COUMADIN [Concomitant]
  4. ALDACTONE [Concomitant]
  5. PROSCAR [Concomitant]
  6. LASIX [Concomitant]
  7. VERAPAMIL [Concomitant]
  8. ALPHAGAN [Concomitant]

REACTIONS (2)
  - DYSGEUSIA [None]
  - PNEUMONIA [None]
